FAERS Safety Report 14447265 (Version 1)
Quarter: 2018Q1

REPORT INFORMATION
  Report Type: Spontaneous
  Country: US (occurrence: US)
  Receive Date: 20180126
  Receipt Date: 20180126
  Transmission Date: 20180509
  Serious: Yes (Life-Threatening)
  Sender: FDA-Public Use
  Company Number: US-TEVA-2018-US-851429

PATIENT
  Sex: Male

DRUGS (1)
  1. PRIMIDONE. [Suspect]
     Active Substance: PRIMIDONE
     Dosage: SINCE 1977
     Route: 065

REACTIONS (3)
  - Impaired driving ability [Unknown]
  - Drug effect increased [Unknown]
  - Drug ineffective [Unknown]
